FAERS Safety Report 15391689 (Version 2)
Quarter: 2018Q3

REPORT INFORMATION
  Report Type: Report from Study
  Country: AR (occurrence: AR)
  Receive Date: 20180917
  Receipt Date: 20180927
  Transmission Date: 20181010
  Serious: Yes (Other)
  Sender: FDA-Public Use
  Company Number: AR-BAYER-2018-161351

PATIENT
  Age: 71 Year
  Sex: Female

DRUGS (5)
  1. CALMANTE VITAMINADO PG [Concomitant]
  2. NEXAVAR [Suspect]
     Active Substance: SORAFENIB
     Indication: HEPATOCELLULAR CARCINOMA
     Dosage: 800 MG DAILY
     Route: 048
     Dates: start: 20180713, end: 20180813
  3. T4 [Concomitant]
     Active Substance: LEVOTHYROXINE
  4. TAMOXIFEN [Concomitant]
     Active Substance: TAMOXIFEN
  5. ASPIRINETAS [Concomitant]
     Active Substance: ASPIRIN

REACTIONS (5)
  - Abdominal distension [Not Recovered/Not Resolved]
  - Hypophagia [Not Recovered/Not Resolved]
  - Fatigue [Not Recovered/Not Resolved]
  - Palmoplantar keratoderma [Recovering/Resolving]
  - Limb discomfort [Recovering/Resolving]

NARRATIVE: CASE EVENT DATE: 201807
